FAERS Safety Report 5143591-8 (Version None)
Quarter: 2006Q4

REPORT INFORMATION
  Report Type: 
  Country: None (occurrence: None)
  Receive Date: 20061103
  Receipt Date: 20061024
  Transmission Date: 20070319
  Serious: Yes (Death, Other)
  Sender: FDA-Public Use
  Company Number: JP-ELI_LILLY_AND_COMPANY-JP200610004284

PATIENT
  Age: 82 Year
  Sex: Male

DRUGS (8)
  1. GEMZAR [Suspect]
     Indication: PANCREATIC CARCINOMA STAGE IV
     Dosage: 1000 MG, OTHER
     Route: 042
     Dates: start: 20060922, end: 20060922
  2. ASPIRIN [Concomitant]
     Indication: CEREBROVASCULAR ACCIDENT PROPHYLAXIS
     Dosage: 100 MG, DAILY (1/D)
     Route: 048
     Dates: start: 20060830
  3. NEUROTROPIN [Concomitant]
     Indication: TRIGEMINAL NEURALGIA
     Dosage: 8 U, 2/D
     Route: 048
     Dates: start: 20060830
  4. DOGMATYL [Concomitant]
     Indication: ANOREXIA
     Dosage: 50 MG, DAILY (1/D)
     Route: 048
     Dates: start: 20060904
  5. SENNOSIDE A [Concomitant]
     Indication: CONSTIPATION
     Dosage: 1 TABLET, DAILY (1/D)
     Route: 048
     Dates: start: 20060914
  6. SENNOSIDE A [Concomitant]
     Dosage: 1 TABLET, DAILY (1/D)
     Route: 048
     Dates: start: 20060914
  7. WARFARIN SODIUM [Concomitant]
     Indication: CEREBROVASCULAR ACCIDENT PROPHYLAXIS
     Dosage: 2.5 MG, DAILY (1/D)
     Route: 048
     Dates: start: 20060922, end: 20060924
  8. HEPARIN [Concomitant]
     Indication: CEREBROVASCULAR ACCIDENT PROPHYLAXIS
     Dosage: 10000 U, DAILY (1/D)
     Route: 042
     Dates: start: 20060831, end: 20060924

REACTIONS (3)
  - CEREBRAL HAEMORRHAGE [None]
  - INTERNATIONAL NORMALISED RATIO INCREASED [None]
  - PLATELET COUNT DECREASED [None]
